FAERS Safety Report 13067225 (Version 2)
Quarter: 2018Q3

REPORT INFORMATION
  Report Type: Spontaneous
  Country: US (occurrence: US)
  Receive Date: 20161227
  Receipt Date: 20180725
  Transmission Date: 20181010
  Serious: No
  Sender: FDA-Public Use
  Company Number: US-009507513-1612USA000776

PATIENT
  Age: 27 Year
  Sex: Female

DRUGS (2)
  1. EMTRICITABINE (+) TENOFOVIR DISOPROXIL FUMARATE [Suspect]
     Active Substance: EMTRICITABINE\TENOFOVIR DISOPROXIL
     Dosage: 500 DOSE DAILY
     Route: 048
  2. RALTEGRAVIR POTASSIUM [Suspect]
     Active Substance: RALTEGRAVIR POTASSIUM
     Dosage: 800 DOSE DAILY
     Route: 048

REACTIONS (2)
  - No adverse event [Unknown]
  - Exposure during pregnancy [Recovered/Resolved]
